FAERS Safety Report 6687591-5 (Version None)
Quarter: 2010Q2

REPORT INFORMATION
  Report Type: 
  Country: None (occurrence: None)
  Receive Date: 20100416
  Receipt Date: 20100416
  Transmission Date: 20101027
  Serious: Yes (Disabling)
  Sender: FDA-Public Use
  Company Number: None

PATIENT
  Sex: Female
  Weight: 64.8644 kg

DRUGS (9)
  1. ARAVA [Suspect]
     Indication: RHEUMATOID ARTHRITIS
     Dosage: 200 MG DAILY PO
     Route: 048
     Dates: start: 20050207, end: 20100309
  2. ENBREL [Concomitant]
  3. PLAQUENIL [Concomitant]
  4. LISINOPRIL [Concomitant]
  5. LORATADINE [Concomitant]
  6. FISH OIL [Concomitant]
  7. GINKGO BILOBA [Concomitant]
  8. NIACIN [Concomitant]
  9. VITAMIN B6 [Concomitant]

REACTIONS (2)
  - NEUROPATHY PERIPHERAL [None]
  - PARAESTHESIA [None]
